FAERS Safety Report 19687228 (Version 2)
Quarter: 2021Q4

REPORT INFORMATION
  Report Type: Report from Study
  Country: None (occurrence: US)
  Receive Date: 20210811
  Receipt Date: 20211003
  Transmission Date: 20220303
  Serious: Yes (Hospitalization)
  Sender: FDA-Public Use
  Company Number: US-ABBVIE-21K-163-4029382-00

PATIENT
  Age: 84 Year
  Sex: Female

DRUGS (2)
  1. IMBRUVICA [Suspect]
     Active Substance: IBRUTINIB
     Indication: Chronic lymphocytic leukaemia
     Route: 048
     Dates: start: 201912
  2. IMBRUVICA [Suspect]
     Active Substance: IBRUTINIB
     Route: 048

REACTIONS (11)
  - Skin weeping [Unknown]
  - Thrombosis [Recovering/Resolving]
  - Full blood count abnormal [Recovering/Resolving]
  - Abdominal distension [Recovering/Resolving]
  - Feeding disorder [Recovering/Resolving]
  - Gastroenteritis viral [Unknown]
  - Gastric infection [Unknown]
  - Localised infection [Unknown]
  - Oedema peripheral [Unknown]
  - Abdominal pain upper [Recovering/Resolving]
  - Diarrhoea [Recovering/Resolving]

NARRATIVE: CASE EVENT DATE: 20210701
